FAERS Safety Report 7423811-7 (Version None)
Quarter: 2011Q2

REPORT INFORMATION
  Report Type: 
  Country: None (occurrence: None)
  Receive Date: 20110419
  Receipt Date: 20110413
  Transmission Date: 20111010
  Serious: Yes (Death, Hospitalization, Other)
  Sender: FDA-Public Use
  Company Number: PHHY2010DE03102

PATIENT
  Sex: Female
  Weight: 64 kg

DRUGS (6)
  1. ZOMETA [Suspect]
     Indication: PROPHYLAXIS
     Dosage: 4 MG EVERY 4 WEEKS
     Route: 042
     Dates: start: 20090223
  2. ZOMETA [Suspect]
     Dosage: 4 MG EVERY 4 WEEKS
     Route: 042
     Dates: start: 20100504
  3. TAMOXIFEN CITRATE [Concomitant]
     Dosage: UNK
     Dates: start: 20091119
  4. FASLODEX [Concomitant]
     Dosage: UNK
     Dates: start: 20100304, end: 20100501
  5. TILIDIN [Concomitant]
     Dosage: UNK
     Dates: start: 20090401
  6. METAMIZOLE [Concomitant]
     Dosage: UNK
     Dates: start: 20090415

REACTIONS (6)
  - PATHOLOGICAL FRACTURE [None]
  - DEATH [None]
  - FALL [None]
  - NEOPLASM MALIGNANT [None]
  - METASTASES TO BONE [None]
  - GENERAL PHYSICAL HEALTH DETERIORATION [None]
